FAERS Safety Report 4819377-8 (Version None)
Quarter: 2005Q4

REPORT INFORMATION
  Report Type: 
  Country: None (occurrence: None)
  Receive Date: 20051103
  Receipt Date: 20051006
  Transmission Date: 20060501
  Serious: Yes (Hospitalization)
  Sender: FDA-Public Use
  Company Number: US-NOVOPROD-247581

PATIENT
  Age: 49 Year
  Sex: Male
  Weight: 77 kg

DRUGS (5)
  1. NOVOMIX 30 FLEXPEN [Suspect]
     Indication: INSULIN-REQUIRING TYPE II DIABETES MELLITUS
     Dosage: 5 U, BID
     Route: 058
     Dates: start: 20051007
  2. NOVOMIX 30 FLEXPEN [Suspect]
     Dosage: 12 U, QD
     Route: 058
     Dates: start: 20050814, end: 20051006
  3. COZAAR [Concomitant]
     Dosage: 100 MG, QD
     Route: 048
     Dates: start: 20050111
  4. ASPIRIN [Concomitant]
     Dosage: 81 MG, QD
     Route: 048
     Dates: start: 20031001
  5. LIPITOR                                 /NET/ [Concomitant]
     Dosage: 10 MG, QD
     Route: 048
     Dates: start: 20040330

REACTIONS (6)
  - DEHYDRATION [None]
  - GENERAL PHYSICAL HEALTH DETERIORATION [None]
  - HYPOGLYCAEMIA [None]
  - MITRAL VALVE INCOMPETENCE [None]
  - SYNCOPE [None]
  - VENTRICULAR HYPERTROPHY [None]
